FAERS Safety Report 18503515 (Version 1)
Quarter: 2020Q4

REPORT INFORMATION
  Report Type: Spontaneous
  Country: US (occurrence: US)
  Receive Date: 20201113
  Receipt Date: 20201113
  Transmission Date: 20210114
  Serious: Yes (Other)
  Sender: FDA-Public Use
  Company Number: US-009507513-2011USA002982

PATIENT

DRUGS (2)
  1. PRINIVIL [Suspect]
     Active Substance: LISINOPRIL
     Dosage: UNK
  2. DIOVAN [Suspect]
     Active Substance: VALSARTAN
     Dosage: UNK

REACTIONS (2)
  - Angioedema [Unknown]
  - Hypersensitivity [Unknown]
